FAERS Safety Report 4780956-8 (Version None)
Quarter: 2005Q3

REPORT INFORMATION
  Report Type: 
  Country: None (occurrence: None)
  Receive Date: 20050927
  Receipt Date: 20050927
  Transmission Date: 20060218
  Serious: Yes (Hospitalization)
  Sender: FDA-Public Use
  Company Number: None

PATIENT
  Sex: Female

DRUGS (5)
  1. THALIDOMIDE 100MG PO QD, [Suspect]
     Indication: MANTLE CELL LYMPHOMA
     Dosage: 100MG PO QD
     Route: 048
     Dates: end: 20050925
  2. RITUXAN [Suspect]
     Dosage: 375MG/M2 IV
     Route: 042
     Dates: end: 20050922
  3. ETOPOSIDE [Suspect]
  4. PREDNISONE [Suspect]
  5. CYTOXAN [Suspect]

REACTIONS (1)
  - FEBRILE NEUTROPENIA [None]
